FAERS Safety Report 11594358 (Version 2)
Quarter: 2015Q4

REPORT INFORMATION
  Report Type: Spontaneous
  Country: US (occurrence: US)
  Receive Date: 20151005
  Receipt Date: 20151015
  Transmission Date: 20160304
  Serious: Yes (Death, Life-Threatening, Hospitalization, Other)
  Sender: FDA-Public Use
  Company Number: US-GLAXOSMITHKLINE-US2015GSK141721

PATIENT
  Age: 72 Year
  Sex: Male

DRUGS (4)
  1. DECADRON [Suspect]
     Active Substance: DEXAMETHASONE
     Indication: PLASMA CELL MYELOMA
     Dosage: 20 MG, 1D (EVERY MORNING)
     Route: 042
     Dates: start: 20150323, end: 20150608
  2. MELPHALAN [Suspect]
     Active Substance: MELPHALAN
     Indication: PLASMA CELL MYELOMA
     Dosage: 10 MG, 1D (DAILY, 4 DAYS EACH CYCLE)
     Route: 048
     Dates: start: 20150520, end: 20150608
  3. VINCRISTINE SULFATE. [Suspect]
     Active Substance: VINCRISTINE SULFATE
     Indication: PLASMA CELL MYELOMA
     Dosage: 2 MG, 1D (DAY 1 EACH CYCLE)
     Route: 042
     Dates: start: 20150323, end: 20150608
  4. CYTOXAN [Suspect]
     Active Substance: CYCLOPHOSPHAMIDE
     Indication: PLASMA CELL MYELOMA
     Dosage: 768 MG, DAY 1 EACH CYCLE
     Route: 042
     Dates: start: 20150323, end: 20150608

REACTIONS (1)
  - Plasma cell myeloma [Fatal]

NARRATIVE: CASE EVENT DATE: 20150613
